FAERS Safety Report 14711398 (Version 1)
Quarter: 2018Q2

REPORT INFORMATION
  Report Type: Spontaneous
  Country: CH (occurrence: CH)
  Receive Date: 20180403
  Receipt Date: 20180403
  Transmission Date: 20180711
  Serious: Yes (Other)
  Sender: FDA-Public Use
  Company Number: PHHY2018CH043727

PATIENT
  Age: 27 Year
  Sex: Male
  Weight: 65 kg

DRUGS (2)
  1. SEVRE LONG [Suspect]
     Active Substance: MORPHINE SULFATE
     Indication: EX-DRUG ABUSER
     Dosage: 400 MG, QD
     Route: 065
     Dates: start: 201709
  2. RITALIN [Suspect]
     Active Substance: METHYLPHENIDATE HYDROCHLORIDE
     Indication: ATTENTION DEFICIT/HYPERACTIVITY DISORDER
     Route: 048
     Dates: start: 201709, end: 20180208

REACTIONS (3)
  - Hallucination, visual [Recovered/Resolved]
  - Drug interaction [Recovered/Resolved]
  - Hallucination, tactile [Recovered/Resolved]

NARRATIVE: CASE EVENT DATE: 201801
